FAERS Safety Report 6623909-7 (Version None)
Quarter: 2010Q1

REPORT INFORMATION
  Report Type: 
  Country: None (occurrence: None)
  Receive Date: 20100310
  Receipt Date: 20100222
  Transmission Date: 20100710
  Serious: Yes (Death, Hospitalization)
  Sender: FDA-Public Use
  Company Number: -SANOFI-AVENTIS-2010SA010102

PATIENT
  Age: 57 Year
  Sex: Female

DRUGS (4)
  1. RIFAMPICIN [Suspect]
     Indication: PULMONARY TUBERCULOSIS
     Route: 065
  2. ETHAMBUTOL HYDROCHLORIDE [Suspect]
     Indication: PULMONARY TUBERCULOSIS
     Route: 065
  3. PYRAZINAMIDE [Suspect]
     Indication: PULMONARY TUBERCULOSIS
     Route: 065
  4. ISONIAZID [Suspect]
     Indication: PULMONARY TUBERCULOSIS
     Route: 065

REACTIONS (4)
  - ACUTE HEPATIC FAILURE [None]
  - ENCEPHALOPATHY [None]
  - HEPATOTOXICITY [None]
  - LOSS OF CONSCIOUSNESS [None]
